FAERS Safety Report 22245871 (Version 3)
Quarter: 2023Q4

REPORT INFORMATION
  Report Type: Other
  Country: IN (occurrence: None)
  Receive Date: 20230424
  Receipt Date: 20231023
  Transmission Date: 20240110
  Serious: Yes (Death, Other)
  Sender: FDA-Public Use
  Company Number: IN-ROCHE-2889962

PATIENT
  Age: 50 Year
  Sex: Male
  Weight: 65 kg

DRUGS (5)
  1. TECENTRIQ [Suspect]
     Active Substance: ATEZOLIZUMAB
     Indication: Hepatocellular carcinoma
     Dosage: LAST DOSE 05/APR/2023
     Route: 042
     Dates: start: 20210721
  2. AVASTIN [Suspect]
     Active Substance: BEVACIZUMAB
     Indication: Hepatocellular carcinoma
     Dosage: LAST DOSE 05/APR/2023
     Route: 042
     Dates: start: 20210721
  3. HEPKART [Concomitant]
  4. RIFAXIMIN [Concomitant]
     Active Substance: RIFAXIMIN
  5. DUPHALAC [Concomitant]
     Active Substance: LACTULOSE

REACTIONS (3)
  - Off label use [Unknown]
  - Death [Fatal]
  - Pain [Unknown]

NARRATIVE: CASE EVENT DATE: 20230414
